FAERS Safety Report 5708557-5 (Version None)
Quarter: 2008Q2

REPORT INFORMATION
  Report Type: 
  Country: None (occurrence: None)
  Receive Date: 20080417
  Receipt Date: 20080408
  Transmission Date: 20081010
  Serious: Yes (Hospitalization)
  Sender: FDA-Public Use
  Company Number: US-PFIZER INC-2008031325

PATIENT
  Sex: Female
  Weight: 54.545 kg

DRUGS (10)
  1. SOLU-MEDROL [Suspect]
     Indication: NERVE BLOCK
     Dates: start: 20080320, end: 20080320
  2. SOLU-MEDROL [Suspect]
     Indication: PELVIC PAIN
  3. AMITRIPTYLINE HCL [Concomitant]
  4. TOPAMAX [Concomitant]
  5. DITROPAN [Concomitant]
  6. ELMIRON [Concomitant]
  7. LYRICA [Concomitant]
  8. TIZANIDINE HCL [Concomitant]
  9. TORADOL [Concomitant]
  10. HERBAL PREPARATION [Concomitant]

REACTIONS (1)
  - URETHRAL PAIN [None]
